FAERS Safety Report 22889664 (Version 2)
Quarter: 2023Q4

REPORT INFORMATION
  Report Type: Report from Study
  Country: CA (occurrence: CA)
  Receive Date: 20230831
  Receipt Date: 20231115
  Transmission Date: 20240110
  Serious: Yes (Other)
  Sender: FDA-Public Use
  Company Number: CA-BAUSCH-BL-2023-008926

PATIENT
  Sex: Female

DRUGS (6)
  1. CONTRAVE [Suspect]
     Active Substance: BUPROPION HYDROCHLORIDE\NALTREXONE HYDROCHLORIDE
     Indication: Weight control
     Dosage: 90/8 MG, 1 TAB DAILY (FIRST ATTEMPT)
     Route: 048
     Dates: start: 20230601, end: 202306
  2. CONTRAVE [Suspect]
     Active Substance: BUPROPION HYDROCHLORIDE\NALTREXONE HYDROCHLORIDE
     Dosage: 90/8 MG, 1 TAB DAILY (SECOND ATTEMPT)
     Route: 048
     Dates: start: 20230806, end: 20230812
  3. CONTRAVE [Suspect]
     Active Substance: BUPROPION HYDROCHLORIDE\NALTREXONE HYDROCHLORIDE
     Dosage: 90/8 MG, 1 TAB BID (SECOND ATTEMPT)
     Route: 048
     Dates: start: 20230813, end: 2023
  4. CONTRAVE [Suspect]
     Active Substance: BUPROPION HYDROCHLORIDE\NALTREXONE HYDROCHLORIDE
     Dosage: 90/8 MG, 3 TABS/ DAY (1 IN 12 HR)
     Route: 048
     Dates: start: 2023, end: 202310
  5. HERBALS\TURMERIC [Concomitant]
     Active Substance: HERBALS\TURMERIC
     Indication: Supplementation therapy
     Dosage: UNK
     Route: 048
  6. ZOPICLONE [Concomitant]
     Active Substance: ZOPICLONE
     Indication: Insomnia
     Dosage: 1/2 OF 7.5MG TAB (BEDTIME) (1 IN 1 D)
     Route: 048

REACTIONS (10)
  - Mammoplasty [Unknown]
  - Post procedural complication [Unknown]
  - Euphoric mood [Recovered/Resolved]
  - Panic attack [Recovered/Resolved]
  - Disease recurrence [Recovered/Resolved]
  - Dizziness [Recovered/Resolved]
  - Depressed mood [Unknown]
  - Malaise [Unknown]
  - Therapy interrupted [Unknown]
  - Intentional product use issue [Unknown]

NARRATIVE: CASE EVENT DATE: 20230101
